FAERS Safety Report 4425002-0 (Version None)
Quarter: 2004Q3

REPORT INFORMATION
  Report Type: 
  Country: None (occurrence: None)
  Receive Date: 20040811
  Receipt Date: 20040811
  Transmission Date: 20050211
  Serious: Yes (Hospitalization)
  Sender: FDA-Public Use
  Company Number: None

PATIENT
  Age: 79 Year
  Sex: Female
  Weight: 87.5 kg

DRUGS (1)
  1. NAPRAPAC 375 (COPACKAGED) [Suspect]
     Dosage: 375 BID ORAL
     Route: 048
     Dates: start: 20040320, end: 20040322

REACTIONS (1)
  - HYPERSENSITIVITY [None]
